FAERS Safety Report 19025210 (Version 1)
Quarter: 2021Q1

REPORT INFORMATION
  Report Type: Spontaneous
  Country: US (occurrence: US)
  Receive Date: 20210317
  Receipt Date: 20210317
  Transmission Date: 20210420
  Serious: Yes (Hospitalization)
  Sender: FDA-Public Use
  Company Number: None

PATIENT
  Age: 17 Year
  Sex: Male

DRUGS (1)
  1. PULMOZYME [Suspect]
     Active Substance: DORNASE ALFA
     Indication: BRONCHITIS
     Route: 055
     Dates: start: 202102

REACTIONS (2)
  - Pneumonia [None]
  - Pseudomonas infection [None]

NARRATIVE: CASE EVENT DATE: 20210220
